FAERS Safety Report 19589563 (Version 1)
Quarter: 2021Q3

REPORT INFORMATION
  Report Type: Spontaneous
  Country: RU (occurrence: RU)
  Receive Date: 20210721
  Receipt Date: 20210721
  Transmission Date: 20211014
  Serious: Yes (Other)
  Sender: FDA-Public Use
  Company Number: RU-APOTEX-2021AP020495

PATIENT
  Age: 52 Year
  Sex: Female

DRUGS (4)
  1. CONCOR [Concomitant]
     Active Substance: BISOPROLOL FUMARATE
     Indication: CARDIAC DISORDER
     Dosage: UNK
     Route: 065
  2. PAXIL [Suspect]
     Active Substance: PAROXETINE HYDROCHLORIDE
     Dosage: 2 DOSAGE FORM
     Route: 065
  3. CARDIOMAGNYL [Concomitant]
     Active Substance: ASPIRIN\MAGNESIUM HYDROXIDE
     Indication: CARDIAC DISORDER
     Dosage: UNK
     Route: 065
  4. PAXIL [Suspect]
     Active Substance: PAROXETINE HYDROCHLORIDE
     Indication: PRODUCT USED FOR UNKNOWN INDICATION
     Dosage: 1 DOSAGE FORM, QD
     Route: 065

REACTIONS (29)
  - Hypoaesthesia [Unknown]
  - Nail disorder [Unknown]
  - Swelling [Unknown]
  - Muscle atrophy [Unknown]
  - Skin atrophy [Unknown]
  - Sleep disorder [Unknown]
  - Fear [Unknown]
  - Weight decreased [Unknown]
  - Dyskinesia [Unknown]
  - Pain [Unknown]
  - Somnolence [Unknown]
  - Hypoacusis [Unknown]
  - Thirst decreased [Unknown]
  - Vision blurred [Unknown]
  - Melanocytic naevus [Unknown]
  - Dyspnoea [Unknown]
  - Dehydration [Unknown]
  - Ill-defined disorder [Unknown]
  - Prescription drug used without a prescription [Unknown]
  - Nail growth abnormal [Unknown]
  - Treatment noncompliance [Unknown]
  - Hyperhidrosis [Unknown]
  - Visual impairment [Unknown]
  - Myalgia [Unknown]
  - Decreased appetite [Unknown]
  - Bradycardia [Unknown]
  - Rash [Unknown]
  - Cardiac disorder [Unknown]
  - Nervous system disorder [Unknown]
